FAERS Safety Report 22812835 (Version 2)
Quarter: 2023Q4

REPORT INFORMATION
  Report Type: Spontaneous
  Country: CA (occurrence: CA)
  Receive Date: 20230811
  Receipt Date: 20231026
  Transmission Date: 20240109
  Serious: Yes (Other)
  Sender: FDA-Public Use
  Company Number: CA-CELLTRION INC.-2023CA015896

PATIENT

DRUGS (3)
  1. RITUXIMAB [Suspect]
     Active Substance: RITUXIMAB
     Indication: Product used for unknown indication
     Route: 065
  2. OFATUMUMAB [Suspect]
     Active Substance: OFATUMUMAB
     Indication: Thrombotic thrombocytopenic purpura
     Dosage: 2300 MILLIGRAM
     Route: 065
  3. OFATUMUMAB [Suspect]
     Active Substance: OFATUMUMAB
     Dosage: 2300 MILLIGRAM, 1 EVERY 1 WEEKS
     Route: 065

REACTIONS (3)
  - ADAMTS13 activity decreased [Unknown]
  - Drug intolerance [Unknown]
  - Serum sickness [Unknown]
